FAERS Safety Report 18658130 (Version 1)
Quarter: 2020Q4

REPORT INFORMATION
  Report Type: Spontaneous
  Country: PL (occurrence: PL)
  Receive Date: 20201223
  Receipt Date: 20201223
  Transmission Date: 20210114
  Serious: Yes (Hospitalization, Other)
  Sender: FDA-Public Use
  Company Number: PL-B.I. PHARMACEUTICALS,INC./RIDGEFIELD-2020-BI-069129

PATIENT
  Age: 69 Year
  Sex: Female

DRUGS (10)
  1. NIMESULIDE [Concomitant]
     Active Substance: NIMESULIDE
     Indication: ANALGESIC THERAPY
  2. METOPROLOL. [Concomitant]
     Active Substance: METOPROLOL
     Indication: PRODUCT USED FOR UNKNOWN INDICATION
     Dosage: AT A DOSE OF 100 MG - IT WAS A DRUG WITH A DIFFERENT TRADE NAME.?SHE WAS FOUND TO HAVE BEEN GIVEN A
     Route: 065
  3. AMLODIPINE;INDAPAMIDE;PERINDOPRIL [Concomitant]
     Active Substance: AMLODIPINE\INDAPAMIDE\PERINDOPRIL
     Indication: PRODUCT USED FOR UNKNOWN INDICATION
     Dosage: A FIXED DOSE COMBINATION 1 X 1 TABL. IN THE MORNING
     Route: 065
  4. NIMESULIDE [Concomitant]
     Active Substance: NIMESULIDE
     Indication: ANTIINFLAMMATORY THERAPY
     Route: 065
  5. KETOPROFEN. [Concomitant]
     Active Substance: KETOPROFEN
     Indication: ARTHRALGIA
     Dosage: TAKEN AT TIMES OF SEVERE ARTHRALGIA
     Route: 065
  6. METOPROLOL. [Concomitant]
     Active Substance: METOPROLOL
     Route: 065
  7. ITRACONAZOLE. [Concomitant]
     Active Substance: ITRACONAZOLE
     Indication: TINEA VERSICOLOUR
     Route: 065
  8. ACETYLSALICYLIC ACID [Concomitant]
     Active Substance: ASPIRIN
     Indication: INFECTION
     Dosage: THE PATIENT WAS TAKING FOR THE LAST 3 DAYS DUE TO INFECTION
     Route: 065
  9. PROPAFENONE. [Concomitant]
     Active Substance: PROPAFENONE
     Indication: ATRIAL FIBRILLATION
     Dosage: AD HOC IN THE EVENT OF ATRIAL FIBRILLATION (AF) EPISODE
     Route: 065
  10. PRADAXA [Suspect]
     Active Substance: DABIGATRAN ETEXILATE MESYLATE
     Indication: ATRIAL FIBRILLATION
     Route: 065

REACTIONS (3)
  - Gastrointestinal haemorrhage [Unknown]
  - Atrioventricular block complete [Unknown]
  - Drug interaction [Unknown]
